FAERS Safety Report 9173235 (Version 8)
Quarter: 2013Q4

REPORT INFORMATION
  Report Type: Spontaneous
  Country: US (occurrence: US)
  Receive Date: 20130320
  Receipt Date: 20131114
  Transmission Date: 20140711
  Serious: No
  Sender: FDA-Public Use
  Company Number: US-009507513-1303USA007232

PATIENT
  Age: 61 Year
  Sex: Female

DRUGS (6)
  1. VICTRELIS [Suspect]
     Indication: CHRONIC HEPATITIS C
     Dosage: UNK
     Route: 065
     Dates: start: 20121207
  2. REBETOL [Suspect]
     Indication: CHRONIC HEPATITIS C
     Dosage: UNK UNK, BID
     Route: 048
     Dates: start: 20121101
  3. REBETOL [Suspect]
     Dosage: 800 MG, QD
     Route: 048
     Dates: start: 20130207, end: 20130313
  4. REBETOL [Suspect]
     Dosage: 400 MG, BID
     Route: 048
  5. REBETOL [Suspect]
     Dosage: 600/400 MG DAILY DIVIDED DOSES
     Route: 048
     Dates: start: 201306
  6. PEGASYS [Suspect]
     Indication: CHRONIC HEPATITIS C
     Dosage: 180 MICROGRAM, QW
     Route: 058
     Dates: start: 20121101, end: 20131017

REACTIONS (6)
  - White blood cell count decreased [Unknown]
  - Decreased appetite [Unknown]
  - Anaemia [Unknown]
  - Rash pruritic [Unknown]
  - Weight decreased [Unknown]
  - Hypersensitivity [Unknown]
